FAERS Safety Report 16772157 (Version 1)
Quarter: 2019Q3

REPORT INFORMATION
  Report Type: Spontaneous
  Country: CH (occurrence: CH)
  Receive Date: 20190904
  Receipt Date: 20190904
  Transmission Date: 20191005
  Serious: Yes (Hospitalization, Other)
  Sender: FDA-Public Use
  Company Number: CH-009507513-1908CHE013048

PATIENT
  Age: 95 Year
  Sex: Male

DRUGS (16)
  1. VENLAFAXINE HYDROCHLORIDE. [Suspect]
     Active Substance: VENLAFAXINE HYDROCHLORIDE
     Dosage: 75 MILLIGRAM, QD
     Route: 048
     Dates: start: 20190801
  2. SERTRALINE HYDROCHLORIDE. [Concomitant]
     Active Substance: SERTRALINE HYDROCHLORIDE
     Dosage: 50 MILLIGRAM, QD
     Route: 048
     Dates: start: 20190613, end: 20190614
  3. BULBOID [Concomitant]
     Dosage: AS NECESSARY
  4. SERTRALINE HYDROCHLORIDE. [Concomitant]
     Active Substance: SERTRALINE HYDROCHLORIDE
     Dosage: 25 MILLIGRAM, QD
     Route: 048
     Dates: start: 20190606, end: 20190612
  5. PURSANA [Concomitant]
     Active Substance: FIG FRUIT OIL\SORBITOL
  6. SEVREDOL [Concomitant]
     Active Substance: MORPHINE
     Dosage: AS NECESSARY
  7. CLYSSIE [Concomitant]
     Dosage: AS NECESSARY
  8. VENLAFAXINE HYDROCHLORIDE. [Suspect]
     Active Substance: VENLAFAXINE HYDROCHLORIDE
     Dosage: UNK
     Route: 048
     Dates: start: 20190614, end: 20190627
  9. VENLAFAXINE HYDROCHLORIDE. [Suspect]
     Active Substance: VENLAFAXINE HYDROCHLORIDE
     Dosage: 150 MILLIGRAM, QD
     Route: 048
     Dates: start: 20190628, end: 20190731
  10. LAXOBERON [Concomitant]
     Active Substance: SODIUM PICOSULFATE
  11. REMERON [Suspect]
     Active Substance: MIRTAZAPINE
     Dosage: 30 MILLIGRAM, QD
     Route: 048
     Dates: start: 20190628
  12. MST CONTINUS [Concomitant]
     Active Substance: MORPHINE SULFATE
  13. REMERON [Suspect]
     Active Substance: MIRTAZAPINE
     Route: 048
     Dates: start: 20190614, end: 20190627
  14. CLEXANE (ENOXAPARIN SODIUM) [Concomitant]
     Active Substance: ENOXAPARIN SODIUM
  15. DAFALGAN [Concomitant]
     Active Substance: ACETAMINOPHEN
  16. TEMESTA EXPIDET [Concomitant]
     Active Substance: LORAZEPAM
     Dosage: AS NECESSARY

REACTIONS (4)
  - Antipsychotic drug level above therapeutic [Not Recovered/Not Resolved]
  - Atrial flutter [Unknown]
  - Fall [Recovered/Resolved with Sequelae]
  - Pelvic fracture [Not Recovered/Not Resolved]

NARRATIVE: CASE EVENT DATE: 201907
